FAERS Safety Report 25206749 (Version 2)
Quarter: 2025Q4

REPORT INFORMATION
  Report Type: Spontaneous
  Country: JP (occurrence: JP)
  Receive Date: 20250417
  Receipt Date: 20251009
  Transmission Date: 20260119
  Serious: Yes (Death, Other)
  Sender: ASTELLAS
  Company Number: JP-ASTELLAS-2025-AER-020566

PATIENT
  Age: 73 Year
  Sex: Male
  Weight: 54 kg

DRUGS (17)
  1. PADCEV [Suspect]
     Active Substance: ENFORTUMAB VEDOTIN-EJFV
     Indication: Bladder cancer
     Dosage: 50 MG, ADMINISTER ONCE A WEEK FOR THREE CONSECUTIVE WEEKS, WITH A BREAK ON THE FOURTH WEEK
     Route: 042
     Dates: start: 20241016, end: 20250228
  2. MERCAZOLE tablet [Concomitant]
     Indication: Hyperthyroidism
     Route: 048
     Dates: end: 20250227
  3. TAKECAB tablet [Concomitant]
     Indication: Gastrooesophageal reflux disease
     Route: 048
     Dates: end: 20250301
  4. POLAPREZINC tablet [Concomitant]
     Indication: Gastric ulcer
     Route: 048
     Dates: end: 20250301
  5. OLOPATADINE tablet [Concomitant]
     Indication: Pruritus
     Route: 048
     Dates: end: 20250301
  6. CARBAZOCHROME NA SULFONATE injection [Concomitant]
     Indication: Bladder tamponade
     Route: 042
     Dates: start: 20250228, end: 20250301
  7. TRANEXAMIC ACID [Concomitant]
     Active Substance: TRANEXAMIC ACID
     Indication: Bladder tamponade
     Route: 042
     Dates: start: 20250228, end: 20250301
  8. NIFEDIPINE [Concomitant]
     Active Substance: NIFEDIPINE
     Indication: Hypertension
     Route: 048
     Dates: start: 20250228, end: 20250301
  9. LEVOCETIRIZINE HYDROCHLORIDE [Concomitant]
     Active Substance: LEVOCETIRIZINE HYDROCHLORIDE
     Indication: Pruritus
     Route: 048
     Dates: start: 20250228, end: 20250301
  10. BEOVA tablet [Concomitant]
     Indication: Hypertonic bladder
     Route: 048
     Dates: start: 20250228, end: 20250301
  11. BIOFERMIN POWDER [Concomitant]
     Indication: Diarrhoea
     Route: 048
     Dates: start: 20250228, end: 20250301
  12. DICLOFENAC Suppositories 25 mg [Concomitant]
     Indication: Abdominal pain lower
     Route: 054
     Dates: start: 20250301
  13. SOSEGON injection [Concomitant]
     Indication: Sedation
     Route: 042
     Dates: start: 20250301, end: 20250301
  14. CERCINE [Concomitant]
     Active Substance: DIAZEPAM
     Indication: Sedation
     Route: 042
     Dates: start: 20250301, end: 20250301
  15. FLUMAZENIL [Concomitant]
     Active Substance: FLUMAZENIL
     Indication: Sedation
     Route: 042
     Dates: start: 20250301, end: 20250301
  16. IRRADIATED RED BLOOD CELLS-LR [Concomitant]
     Indication: Transfusion
     Route: 042
     Dates: start: 20250302, end: 20250302
  17. ADRENALINE injection 1% [Concomitant]
     Indication: Blood pressure decreased
     Route: 042
     Dates: start: 20250302, end: 20250302

REACTIONS (6)
  - Organ failure [Fatal]
  - Blood potassium decreased [Fatal]
  - Myocardial infarction [Fatal]
  - Altered state of consciousness [Fatal]
  - Renal disorder [Fatal]
  - Tumour lysis syndrome [Unknown]

NARRATIVE: CASE EVENT DATE: 20250201
